FAERS Safety Report 12481639 (Version 2)
Quarter: 2016Q3

REPORT INFORMATION
  Report Type: Spontaneous
  Country: US (occurrence: US)
  Receive Date: 20160620
  Receipt Date: 20160809
  Transmission Date: 20161109
  Serious: Yes (Hospitalization, Other)
  Sender: FDA-Public Use
  Company Number: US-BAYER-2016-112608

PATIENT
  Age: 54 Year
  Sex: Male
  Weight: 86.17 kg

DRUGS (1)
  1. ALKA-SELTZER XTRA STRENGTH [Suspect]
     Active Substance: ANHYDROUS CITRIC ACID\ASPIRIN\SODIUM BICARBONATE
     Indication: ABDOMINAL DISCOMFORT
     Dosage: 2 DF, PRN
     Route: 048
     Dates: start: 201605

REACTIONS (15)
  - Gastric polyps [None]
  - Anaemia [None]
  - Loss of consciousness [Recovered/Resolved]
  - Dizziness [None]
  - Diarrhoea [Recovered/Resolved]
  - Gastric ulcer [None]
  - Gastric ulcer haemorrhage [None]
  - Faeces discoloured [None]
  - Fatigue [None]
  - Orthostatic hypotension [None]
  - Vomiting [Recovered/Resolved]
  - Constipation [None]
  - Gastrointestinal haemorrhage [None]
  - Gastric haemorrhage [Recovered/Resolved]
  - Tachycardia [None]

NARRATIVE: CASE EVENT DATE: 20160516
